FAERS Safety Report 10050251 (Version 1)
Quarter: 2014Q2

REPORT INFORMATION
  Report Type: Report from Study
  Country: US (occurrence: US)
  Receive Date: 20140401
  Receipt Date: 20140401
  Transmission Date: 20141212
  Serious: Yes (Hospitalization, Other)
  Sender: FDA-Public Use
  Company Number: US-ABBVIE-14P-163-1215310-00

PATIENT
  Age: 74 Year
  Sex: Female

DRUGS (8)
  1. HUMIRA [Suspect]
     Indication: RHEUMATOID ARTHRITIS
     Dates: start: 2009, end: 20140210
  2. NEURONTIN [Concomitant]
     Indication: NEUROPATHY PERIPHERAL
  3. ASPIRIN [Concomitant]
     Indication: PRODUCT USED FOR UNKNOWN INDICATION
  4. MICROCIDE [Concomitant]
     Indication: BLOOD PRESSURE
  5. VITAMIN D [Concomitant]
     Indication: PRODUCT USED FOR UNKNOWN INDICATION
  6. FOLIC ACID [Concomitant]
     Indication: PRODUCT USED FOR UNKNOWN INDICATION
  7. PRILOSEC [Concomitant]
     Indication: GASTROOESOPHAGEAL REFLUX DISEASE
  8. PREDNISONE [Concomitant]
     Indication: PRODUCT USED FOR UNKNOWN INDICATION
     Dosage: PLANS TO TAPER OFF
     Dates: start: 20140317

REACTIONS (16)
  - Bundle branch block right [Unknown]
  - Erythema [Recovered/Resolved]
  - Chest pain [Not Recovered/Not Resolved]
  - Cellulitis [Recovered/Resolved]
  - Oedema peripheral [Recovered/Resolved]
  - Peripheral swelling [Recovered/Resolved]
  - Cough [Unknown]
  - Dysphonia [Unknown]
  - Blood sodium decreased [Unknown]
  - Oedema peripheral [Recovered/Resolved]
  - Dry eye [Unknown]
  - Sjogren^s syndrome [Unknown]
  - Ulcerative keratitis [Unknown]
  - Arthritis [Recovering/Resolving]
  - Peripheral swelling [Recovering/Resolving]
  - Erythema [Recovering/Resolving]
